FAERS Safety Report 20193064 (Version 1)
Quarter: 2021Q4

REPORT INFORMATION
  Report Type: Spontaneous
  Country: US (occurrence: US)
  Receive Date: 20211216
  Receipt Date: 20211216
  Transmission Date: 20220304
  Serious: Yes (Hospitalization, Disabling)
  Sender: FDA-Public Use
  Company Number: US-ORG100016242-2021000853

PATIENT
  Age: 56 Year
  Sex: Female
  Weight: 54.5 kg

DRUGS (4)
  1. EXPAREL [Suspect]
     Active Substance: BUPIVACAINE
     Dosage: MIXED WITH 40 CC 0.25% MARCAINE AND 60 CC NACL
     Route: 065
     Dates: start: 20211119, end: 20211119
  2. MARCAINE [Suspect]
     Active Substance: BUPIVACAINE HYDROCHLORIDE
     Dosage: 40 CC WITH 20 CC EXPAREL AND 60 CC NACL
     Route: 065
     Dates: start: 20211119, end: 20211119
  3. SODIUM CHLORIDE [Concomitant]
     Active Substance: SODIUM CHLORIDE
     Dosage: 60 CC WITH 20 CC OF EXPAREL AND 40 CC 0.25% MARCAINE
     Route: 065
     Dates: start: 20211119, end: 20211119
  4. WELLBUTRIN [Concomitant]
     Active Substance: BUPROPION HYDROCHLORIDE
     Route: 048

REACTIONS (2)
  - Toxic epidermal necrolysis [Recovering/Resolving]
  - Wound dehiscence [Recovering/Resolving]
